FAERS Safety Report 5830554-X (Version None)
Quarter: 2008Q3

REPORT INFORMATION
  Report Type: 
  Country: None (occurrence: None)
  Receive Date: 20080801
  Receipt Date: 20070713
  Transmission Date: 20090109
  Serious: Yes (Other)
  Sender: FDA-Public Use
  Company Number: US-BRISTOL-MYERS SQUIBB COMPANY-13845672

PATIENT
  Age: 35 Year
  Sex: Male
  Weight: 100 kg

DRUGS (5)
  1. COUMADIN [Suspect]
     Indication: PULMONARY EMBOLISM
     Dosage: UNK INITIAL DOSE MAY/APRIL 2007 THEN INCR 10 MG;INCR TO 12 MG/D THEN INCR TO 13 MG/D -CURRENT DOSE
     Route: 048
  2. HUMIRA [Suspect]
  3. PREDNISONE [Concomitant]
  4. ASACOL [Concomitant]
  5. MULTI-VITAMIN [Concomitant]

REACTIONS (1)
  - INTERNATIONAL NORMALISED RATIO DECREASED [None]
